FAERS Safety Report 13621624 (Version 4)
Quarter: 2017Q3

REPORT INFORMATION
  Report Type: Report from Study
  Country: US (occurrence: US)
  Receive Date: 20170607
  Receipt Date: 20170926
  Transmission Date: 20171127
  Serious: No
  Sender: FDA-Public Use
  Company Number: PHEH2017US017129

PATIENT
  Sex: Female

DRUGS (1)
  1. GILENYA [Suspect]
     Active Substance: FINGOLIMOD HYDROCHLORIDE
     Indication: MULTIPLE SCLEROSIS
     Dosage: 0.5 MG, QD
     Route: 048

REACTIONS (8)
  - Central nervous system lesion [Unknown]
  - Dizziness [Unknown]
  - Vertigo [Unknown]
  - Gait disturbance [Unknown]
  - Memory impairment [Unknown]
  - Feeling abnormal [Unknown]
  - Headache [Unknown]
  - Speech disorder [Recovering/Resolving]
